FAERS Safety Report 4507593-4 (Version None)
Quarter: 2004Q4

REPORT INFORMATION
  Report Type: 
  Country: None (occurrence: None)
  Receive Date: 20040928
  Receipt Date: 20040603
  Transmission Date: 20050328
  Serious: Yes (Hospitalization)
  Sender: FDA-Public Use
  Company Number: 03P-163-0239454-00

PATIENT
  Age: 80 Year
  Sex: Female
  Weight: 54.4316 kg

DRUGS (17)
  1. HUMIRA [Suspect]
     Indication: RHEUMATOID ARTHRITIS
     Dosage: 40 MG , 1 IN 2 WK, SUBCUTANEOUS
     Route: 058
     Dates: start: 20030601, end: 20030901
  2. GLIPIZIDE [Concomitant]
  3. RANITIDINE HYDROCHLORIDE [Concomitant]
  4. PREDNISONE [Concomitant]
  5. ATENOLOL [Concomitant]
  6. COUMADIN [Concomitant]
  7. ZITHROMAX [Concomitant]
  8. ALENDRONATE SODIUM [Concomitant]
  9. FOLIC ACID [Concomitant]
  10. MINOCYCLINE HCL [Concomitant]
  11. DOCUSATE SODIUM [Concomitant]
  12. OXYBUTYNIN [Concomitant]
  13. ATORVASTATIN CALCIUM [Concomitant]
  14. CALCIUM [Concomitant]
  15. ERGOCALCIFEROL [Concomitant]
  16. ASCORBIC ACID [Concomitant]
  17. MULTI-VITAMINS [Concomitant]

REACTIONS (1)
  - TUBERCULOSIS [None]
